FAERS Safety Report 7389461-6 (Version None)
Quarter: 2011Q2

REPORT INFORMATION
  Report Type: 
  Country: None (occurrence: None)
  Receive Date: 20110401
  Receipt Date: 20110322
  Transmission Date: 20111010
  Serious: Yes (Hospitalization)
  Sender: FDA-Public Use
  Company Number: IE-MEDIMMUNE-MEDI-0013003

PATIENT
  Sex: Male
  Weight: 6.52 kg

DRUGS (4)
  1. MULTIVITAMIN [Concomitant]
  2. ERYTHROMYCIN [Concomitant]
  3. SYNAGIS [Suspect]
     Indication: HEART DISEASE CONGENITAL
     Route: 030
     Dates: start: 20110127, end: 20110201
  4. LANSOPRAZOLE [Concomitant]

REACTIONS (2)
  - PNEUMONIA [None]
  - WHEEZING [None]
